FAERS Safety Report 5682357-7 (Version None)
Quarter: 2008Q1

REPORT INFORMATION
  Report Type: 
  Country: None (occurrence: None)
  Receive Date: 20080326
  Receipt Date: 20080326
  Transmission Date: 20080703
  Serious: Yes (Hospitalization)
  Sender: FDA-Public Use
  Company Number: None

PATIENT
  Sex: Male
  Weight: 96.5 kg

DRUGS (2)
  1. CAMPTOSAR [Suspect]
     Dosage: 749 MG
     Dates: start: 20080307, end: 20080307
  2. ERBITUX [Suspect]
     Dosage: 856 MG
     Dates: end: 20080307

REACTIONS (6)
  - BLOOD CULTURE POSITIVE [None]
  - DEHYDRATION [None]
  - DIARRHOEA [None]
  - NEUTROPENIA [None]
  - PYREXIA [None]
  - STREPTOCOCCAL INFECTION [None]
